FAERS Safety Report 8987682 (Version 1)
Quarter: 2012Q4

REPORT INFORMATION
  Report Type: 
  Country: US (occurrence: US)
  Receive Date: 20121227
  Receipt Date: 20121227
  Transmission Date: 20130627
  Serious: Yes (Death)
  Sender: FDA-Public Use
  Company Number: US-PFIZER INC-2012326404

PATIENT
  Age: 68 Year
  Sex: Male

DRUGS (1)
  1. RAPAMUNE [Suspect]
     Indication: LIVER TRANSPLANT
     Dosage: 1 mg, Daily
     Route: 048
     Dates: start: 20120831

REACTIONS (2)
  - Liver disorder [Fatal]
  - Off label use [Unknown]
